FAERS Safety Report 13244985 (Version 1)
Quarter: 2017Q1

REPORT INFORMATION
  Report Type: Spontaneous
  Country: US (occurrence: US)
  Receive Date: 20170216
  Receipt Date: 20170216
  Transmission Date: 20170428
  Serious: No
  Sender: FDA-Public Use
  Company Number: US-BAUSCH-BL-2016-003670

PATIENT
  Sex: Female
  Weight: 63.5 kg

DRUGS (4)
  1. VASOTEC [Suspect]
     Active Substance: ENALAPRIL MALEATE
     Indication: THYROID DISORDER
     Route: 065
  2. LISINOPRIL. [Suspect]
     Active Substance: LISINOPRIL
     Indication: THYROID DISORDER
     Dosage: EVERY MORNING
     Route: 048
  3. CELEBREX [Suspect]
     Active Substance: CELECOXIB
     Indication: ARTHRITIS
  4. CELEBREX [Suspect]
     Active Substance: CELECOXIB
     Indication: SPINAL CORD DISORDER
     Dosage: EVERY MORNING
     Route: 048

REACTIONS (2)
  - Off label use [Unknown]
  - Hypertension [Not Recovered/Not Resolved]
